FAERS Safety Report 9293448 (Version 7)
Quarter: 2016Q2

REPORT INFORMATION
  Report Type: Spontaneous
  Country: US (occurrence: US)
  Receive Date: 20130517
  Receipt Date: 20160429
  Transmission Date: 20160815
  Serious: Yes (Other)
  Sender: FDA-Public Use
  Company Number: US-009507513-1305USA008627

PATIENT
  Sex: Male

DRUGS (2)
  1. LIPITOR [Concomitant]
     Active Substance: ATORVASTATIN CALCIUM
     Route: 065
  2. PROPECIA [Suspect]
     Active Substance: FINASTERIDE
     Indication: ALOPECIA
     Dosage: 1 MG, UNK
     Route: 048
     Dates: end: 201111

REACTIONS (19)
  - Psoriasis [Unknown]
  - Libido decreased [Unknown]
  - Depression [Unknown]
  - Insomnia [Unknown]
  - Erectile dysfunction [Not Recovered/Not Resolved]
  - Basal cell carcinoma [Unknown]
  - Hypertension [Unknown]
  - Depression [Unknown]
  - Arthroscopy [Unknown]
  - Basal cell carcinoma [Unknown]
  - Anxiety [Unknown]
  - Varicose vein [Unknown]
  - Cerumen impaction [Unknown]
  - Sexual dysfunction [Not Recovered/Not Resolved]
  - Thrombocytopenia [Unknown]
  - Basal cell carcinoma [Unknown]
  - Hyperlipidaemia [Unknown]
  - Sclerotherapy [Unknown]
  - Alcohol abuse [Unknown]

NARRATIVE: CASE EVENT DATE: 20051202
